FAERS Safety Report 11269815 (Version 1)
Quarter: 2015Q3

REPORT INFORMATION
  Report Type: Report from Study
  Country: US (occurrence: US)
  Receive Date: 20150714
  Receipt Date: 20150714
  Transmission Date: 20151125
  Serious: Yes (Hospitalization, Other)
  Sender: FDA-Public Use
  Company Number: US-ASTRAZENECA-2015SE66394

PATIENT
  Sex: Female
  Weight: 102.1 kg

DRUGS (14)
  1. CRESTOR [Suspect]
     Active Substance: ROSUVASTATIN CALCIUM
     Indication: BLOOD TRIGLYCERIDES INCREASED
     Route: 048
     Dates: start: 2010
  2. CRESTOR [Suspect]
     Active Substance: ROSUVASTATIN CALCIUM
     Indication: BLOOD TRIGLYCERIDES INCREASED
     Dosage: CUT THE CRESTOR 10 MG TABLETS IN HALF
     Route: 048
  3. CRESTOR [Suspect]
     Active Substance: ROSUVASTATIN CALCIUM
     Indication: BLOOD CHOLESTEROL INCREASED
     Route: 048
     Dates: start: 2009
  4. CRESTOR [Suspect]
     Active Substance: ROSUVASTATIN CALCIUM
     Indication: BLOOD CHOLESTEROL INCREASED
     Route: 048
  5. ATENOLOL. [Suspect]
     Active Substance: ATENOLOL
     Indication: BLOOD PRESSURE ABNORMAL
     Route: 048
  6. CRESTOR [Suspect]
     Active Substance: ROSUVASTATIN CALCIUM
     Indication: BLOOD CHOLESTEROL INCREASED
     Dosage: CUT THE CRESTOR 10 MG TABLETS IN HALF
     Route: 048
  7. CRESTOR [Suspect]
     Active Substance: ROSUVASTATIN CALCIUM
     Indication: BLOOD CHOLESTEROL INCREASED
     Route: 048
     Dates: start: 2010
  8. SYNTHROID [Concomitant]
     Active Substance: LEVOTHYROXINE SODIUM
  9. IRBESTARTON [Concomitant]
     Indication: BLOOD PRESSURE ABNORMAL
     Dates: start: 201501
  10. GENERIC STATIN [Concomitant]
  11. OMEPRAZOLE. [Suspect]
     Active Substance: OMEPRAZOLE
     Indication: GASTROOESOPHAGEAL REFLUX DISEASE
     Route: 048
  12. CRESTOR [Suspect]
     Active Substance: ROSUVASTATIN CALCIUM
     Indication: BLOOD TRIGLYCERIDES INCREASED
     Route: 048
     Dates: start: 2009
  13. CRESTOR [Suspect]
     Active Substance: ROSUVASTATIN CALCIUM
     Indication: BLOOD TRIGLYCERIDES INCREASED
     Route: 048
  14. THYROID MEDICATION [Suspect]
     Active Substance: UNSPECIFIED INGREDIENT
     Route: 065

REACTIONS (16)
  - Musculoskeletal discomfort [Unknown]
  - Arthropathy [Unknown]
  - Gastrooesophageal reflux disease [Unknown]
  - Blood pressure abnormal [Unknown]
  - Spinal deformity [Unknown]
  - Exostosis [Unknown]
  - Intentional product misuse [Unknown]
  - Body height decreased [Unknown]
  - Blood cholesterol increased [Unknown]
  - Weight increased [Unknown]
  - Thrombosis [Recovered/Resolved]
  - Musculoskeletal discomfort [Unknown]
  - Knee deformity [Not Recovered/Not Resolved]
  - Bursitis [Unknown]
  - Arrhythmia [Unknown]
  - Urticaria [Unknown]

NARRATIVE: CASE EVENT DATE: 2008
